FAERS Safety Report 8723293 (Version 2)
Quarter: 2012Q4

REPORT INFORMATION
  Report Type: Spontaneous
  Country: PT (occurrence: None)
  Receive Date: 20120725
  Receipt Date: 20120830
  Transmission Date: 20130627
  Serious: Yes (Death, Life-Threatening, Other)
  Sender: FDA-Public Use
  Company Number: AUR-APL-2012-03044

PATIENT
  Sex: Female

DRUGS (5)
  1. TOPIRAMATE [Suspect]
     Indication: MYOCLONIC EPILEPSY
  2. PHENYTOIN [Suspect]
     Indication: MYOCLONIC EPILEPSY
  3. PHENOBARBITAL [Suspect]
     Indication: MYOCLONIC EPILEPSY
  4. VALPROATE SODIUM [Suspect]
     Indication: MYOCLONIC EPILEPSY
  5. PYRIDOXINE HYDROCHLORIDE [Suspect]
     Indication: MYOCLONIC EPILEPSY

REACTIONS (3)
  - Hypotonia neonatal [None]
  - Lethargy [None]
  - Maternal drugs affecting foetus [None]
